FAERS Safety Report 8547677-7 (Version None)
Quarter: 2012Q3

REPORT INFORMATION
  Report Type: 
  Country: None (occurrence: None)
  Receive Date: 20120727
  Receipt Date: 20111116
  Transmission Date: 20120928
  Serious: Yes (Other)
  Sender: FDA-Public Use
  Company Number: US-ASTRAZENECA-2011SE70078

PATIENT
  Sex: Female

DRUGS (2)
  1. SEROQUEL [Suspect]
     Route: 048
  2. SEROQUEL [Suspect]
     Route: 048

REACTIONS (8)
  - DRUG DOSE OMISSION [None]
  - INSOMNIA [None]
  - SLEEP DISORDER [None]
  - FEAR [None]
  - NIGHTMARE [None]
  - SLEEP TALKING [None]
  - SUICIDAL IDEATION [None]
  - HALLUCINATION, AUDITORY [None]
